FAERS Safety Report 4978195-0 (Version None)
Quarter: 2006Q2

REPORT INFORMATION
  Report Type: 
  Country: None (occurrence: None)
  Receive Date: 20060420
  Receipt Date: 20060320
  Transmission Date: 20061013
  Serious: Yes (Other)
  Sender: FDA-Public Use
  Company Number: CZ-ROCHE-442316

PATIENT
  Age: 16 Year
  Sex: Male

DRUGS (2)
  1. ROACCUTANE [Suspect]
     Indication: ACNE
     Route: 048
     Dates: start: 20051215
  2. ROACCUTANE [Suspect]
     Route: 048
     Dates: end: 20060315

REACTIONS (1)
  - POLYCYTHAEMIA [None]
